FAERS Safety Report 6071541-9 (Version None)
Quarter: 2009Q1

REPORT INFORMATION
  Report Type: 
  Country: None (occurrence: None)
  Receive Date: 20090205
  Receipt Date: 20090205
  Transmission Date: 20090719
  Serious: Yes (Other)
  Sender: FDA-Public Use
  Company Number: None

PATIENT
  Age: 57 Year
  Sex: Female

DRUGS (1)
  1. ISOVUE-370 [Suspect]
     Indication: COMPUTERISED TOMOGRAM
     Dosage: 90 ML ONCE IV
     Route: 042
     Dates: end: 20090116

REACTIONS (4)
  - EYE PRURITUS [None]
  - IODINE ALLERGY [None]
  - REFUSAL OF TREATMENT BY PATIENT [None]
  - SNEEZING [None]
